FAERS Safety Report 6151337-X (Version None)
Quarter: 2009Q2

REPORT INFORMATION
  Report Type: 
  Country: None (occurrence: None)
  Receive Date: 20090410
  Receipt Date: 20070726
  Transmission Date: 20091009
  Serious: Yes (Hospitalization, Other)
  Sender: FDA-Public Use
  Company Number: US-ASTRAZENECA-2007UW05478

PATIENT
  Age: 21648 Day
  Sex: Female
  Weight: 112.9 kg

DRUGS (26)
  1. SEROQUEL [Suspect]
     Indication: DEPRESSION
     Route: 048
     Dates: start: 20020417, end: 20070101
  2. SEROQUEL [Suspect]
     Indication: INSOMNIA
     Route: 048
     Dates: start: 20020417, end: 20070101
  3. SEROQUEL [Suspect]
     Indication: OBSESSIVE-COMPULSIVE DISORDER
     Route: 048
     Dates: start: 20020417, end: 20070101
  4. SEROQUEL [Suspect]
     Route: 048
     Dates: start: 20020401
  5. SEROQUEL [Suspect]
     Route: 048
     Dates: start: 20020401
  6. SEROQUEL [Suspect]
     Route: 048
     Dates: start: 20020401
  7. SEROQUEL [Suspect]
     Dosage: 25 - 300 MG
     Route: 048
     Dates: start: 20020416, end: 20061026
  8. SEROQUEL [Suspect]
     Dosage: 25 - 300 MG
     Route: 048
     Dates: start: 20020416, end: 20061026
  9. SEROQUEL [Suspect]
     Dosage: 25 - 300 MG
     Route: 048
     Dates: start: 20020416, end: 20061026
  10. ZYPREXA [Concomitant]
     Dates: start: 19961007, end: 20030131
  11. RISPERDAL [Concomitant]
     Dates: start: 20000101, end: 20000101
  12. LOTREL [Concomitant]
  13. SYNTHROID [Concomitant]
  14. LEXAPRO [Concomitant]
  15. KLONOPIN [Concomitant]
  16. NAPROSYN [Concomitant]
  17. WELLBUTRIN [Concomitant]
  18. RELAFEN [Concomitant]
  19. GLUCOPHAGE [Concomitant]
  20. ULTRAM [Concomitant]
  21. DESYREL [Concomitant]
  22. CYMBALTA [Concomitant]
  23. CRESTOR [Concomitant]
  24. LOPRESSOR [Concomitant]
  25. LYRICA [Concomitant]
  26. ZOCOR [Concomitant]

REACTIONS (21)
  - ABDOMINAL PAIN [None]
  - ARTHRITIS [None]
  - BREAST MASS [None]
  - CHEST PAIN [None]
  - CHOLELITHIASIS [None]
  - CRYING [None]
  - DIABETES MELLITUS [None]
  - DIARRHOEA [None]
  - DYSPNOEA [None]
  - FATIGUE [None]
  - INTERVERTEBRAL DISC PROTRUSION [None]
  - MAJOR DEPRESSION [None]
  - MALAISE [None]
  - MYOCARDIAL ISCHAEMIA [None]
  - NECK PAIN [None]
  - NEUROPATHY PERIPHERAL [None]
  - OBSESSIVE-COMPULSIVE DISORDER [None]
  - PANCREATITIS ACUTE [None]
  - PANIC ATTACK [None]
  - SUICIDAL IDEATION [None]
  - VULVOVAGINAL MYCOTIC INFECTION [None]
